FAERS Safety Report 19756650 (Version 1)
Quarter: 2021Q3

REPORT INFORMATION
  Report Type: Spontaneous
  Country: US (occurrence: US)
  Receive Date: 20210827
  Receipt Date: 20210827
  Transmission Date: 20211014
  Serious: No
  Sender: FDA-Public Use
  Company Number: US-ANIPHARMA-2021-US-007763

PATIENT
  Age: 61 Year
  Sex: Female
  Weight: 124.74 kg

DRUGS (3)
  1. BISOPROLOL?HCT [Concomitant]
     Dosage: 10?6.25MG TWICE A DAY
     Route: 065
  2. VITAMINS [Concomitant]
     Active Substance: VITAMINS
     Dosage: ONCE DAILY
     Route: 065
  3. ARIMIDEX [Suspect]
     Active Substance: ANASTROZOLE
     Indication: BREAST CANCER
     Dosage: 20MG ONCE DAILY
     Route: 065

REACTIONS (4)
  - Intentional product misuse [Not Recovered/Not Resolved]
  - Weight increased [Not Recovered/Not Resolved]
  - Product use issue [Unknown]
  - Product dose omission issue [Not Recovered/Not Resolved]

NARRATIVE: CASE EVENT DATE: 20210403
